FAERS Safety Report 4708839-X (Version None)
Quarter: 2005Q3

REPORT INFORMATION
  Report Type: 
  Country: None (occurrence: None)
  Receive Date: 20050705
  Receipt Date: 20050622
  Transmission Date: 20060218
  Serious: Yes (Other)
  Sender: FDA-Public Use
  Company Number: 2005094499

PATIENT
  Age: 35 Year
  Sex: Female

DRUGS (4)
  1. ZARONTIN SYRUP [Suspect]
     Indication: EPILEPSY
     Dosage: ORAL
     Route: 048
  2. CARBAMAZEPINE [Concomitant]
  3. PHENOBARBITAL TAB [Concomitant]
  4. LAMOTRIGINE [Concomitant]

REACTIONS (2)
  - CONDITION AGGRAVATED [None]
  - PETIT MAL EPILEPSY [None]
